FAERS Safety Report 5260780-2 (Version None)
Quarter: 2007Q1

REPORT INFORMATION
  Report Type: 
  Country: None (occurrence: None)
  Receive Date: 20070309
  Receipt Date: 20070228
  Transmission Date: 20070707
  Serious: Yes (Death, Disabling)
  Sender: FDA-Public Use
  Company Number: 2006UW21159

PATIENT
  Age: 69 Year
  Sex: Female

DRUGS (4)
  1. SEROQUEL [Suspect]
     Indication: DEMENTIA
     Route: 048
     Dates: start: 20030601, end: 20031220
  2. SEROQUEL [Suspect]
     Indication: DELUSION
     Route: 048
     Dates: start: 20030601, end: 20031220
  3. RISPERDAL [Concomitant]
     Dates: start: 20030610, end: 20030613
  4. CELEXA [Concomitant]
     Dates: start: 20011207, end: 20020701

REACTIONS (4)
  - DEATH [None]
  - DIABETES MELLITUS [None]
  - DIABETES MELLITUS INSULIN-DEPENDENT [None]
  - DIABETIC COMA [None]
